FAERS Safety Report 17947154 (Version 1)
Quarter: 2020Q2

REPORT INFORMATION
  Report Type: Spontaneous
  Country: US (occurrence: US)
  Receive Date: 20200625
  Receipt Date: 20200625
  Transmission Date: 20200714
  Serious: Yes (Death)
  Sender: FDA-Public Use
  Company Number: None

PATIENT
  Age: 51 Year
  Sex: Male
  Weight: 94 kg

DRUGS (11)
  1. DEXAMETHASONE 10 MG IV [Concomitant]
     Dates: start: 20200620, end: 20200622
  2. VANCOMYCIN 1000 MG IV [Concomitant]
     Dates: start: 20200620, end: 20200623
  3. VALPROIC ACID 500 MG IV [Concomitant]
     Dates: start: 20200620, end: 20200623
  4. REMDESIVIR. [Suspect]
     Active Substance: REMDESIVIR
     Indication: COVID-19
     Route: 040
     Dates: start: 20200620, end: 20200621
  5. CEFEPIME 2 GM IV [Concomitant]
     Dates: start: 20200621, end: 20200623
  6. FLUCONAZOLE 200 MG IV [Concomitant]
     Dates: start: 20200620, end: 20200623
  7. METRONIDAZOLE 500 MG IV [Concomitant]
     Dates: start: 20200620, end: 20200622
  8. AMIODARONE 150 MG IV [Concomitant]
     Dates: start: 20200620, end: 20200620
  9. FAMOTIDINE 20 MG IV [Concomitant]
     Dates: start: 20200620, end: 20200623
  10. ASPIRIN 81 MG [Concomitant]
     Active Substance: ASPIRIN
     Dates: start: 20200620, end: 20200623
  11. ATORVASTATIN 80 MG [Concomitant]
     Active Substance: ATORVASTATIN
     Dates: start: 20200620, end: 20200622

REACTIONS (1)
  - Death [None]

NARRATIVE: CASE EVENT DATE: 20200623
